FAERS Safety Report 8455100-6 (Version None)
Quarter: 2012Q2

REPORT INFORMATION
  Report Type: 
  Country: None (occurrence: None)
  Receive Date: 20120621
  Receipt Date: 20120611
  Transmission Date: 20120825
  Serious: Yes (Other)
  Sender: FDA-Public Use
  Company Number: JP-VERTEX PHARMACEUTICALS INC.-AE-2012-008840

PATIENT
  Age: 46 Year
  Sex: Male

DRUGS (9)
  1. PEG-INTRON [Concomitant]
     Indication: HEPATITIS C
     Route: 051
     Dates: start: 20120207, end: 20120610
  2. TELAVIC (TELAPREVIR) [Suspect]
     Route: 048
     Dates: end: 20120430
  3. REBETOL [Concomitant]
     Route: 048
     Dates: start: 20120221, end: 20120227
  4. REBETOL [Concomitant]
     Route: 048
     Dates: start: 20120228, end: 20120610
  5. ALLOPURINOL [Concomitant]
     Route: 048
  6. PROTECADIN [Concomitant]
     Route: 048
  7. TELAVIC (TELAPREVIR) [Suspect]
     Indication: HEPATITIS C
     Route: 048
     Dates: start: 20120207, end: 20120305
  8. TELAVIC (TELAPREVIR) [Suspect]
     Route: 048
     Dates: start: 20120306, end: 20120409
  9. REBETOL [Concomitant]
     Indication: HEPATITIS C
     Route: 048
     Dates: start: 20120207, end: 20120220

REACTIONS (1)
  - RETINAL HAEMORRHAGE [None]
